FAERS Safety Report 6849177-9 (Version None)
Quarter: 2010Q3

REPORT INFORMATION
  Report Type: 
  Country: None (occurrence: None)
  Receive Date: 20100716
  Receipt Date: 20100708
  Transmission Date: 20110219
  Serious: Yes (Other)
  Sender: FDA-Public Use
  Company Number: PHHY2010CA38522

PATIENT

DRUGS (5)
  1. ALISKIREN ALI+ [Suspect]
     Dosage: 150 MG, UNK
     Dates: end: 20100521
  2. ALISKIREN ALI+ [Suspect]
     Dosage: UNK
     Dates: start: 20100610
  3. ACE INHIBITOR NOS [Concomitant]
  4. BETA BLOCKING AGENTS [Concomitant]
  5. ANGIOTENSIN CONVERTING ENZYME BLOCKERS [Concomitant]

REACTIONS (2)
  - GLYCOSYLATED HAEMOGLOBIN INCREASED [None]
  - RENAL MASS [None]
